FAERS Safety Report 10037862 (Version 1)
Quarter: 2014Q1

REPORT INFORMATION
  Report Type: Spontaneous
  Country: US (occurrence: None)
  Receive Date: 20140306
  Receipt Date: 20140306
  Transmission Date: 20141002
  Serious: Yes (Other)
  Sender: FDA-Public Use
  Company Number: 163-21880-13080182

PATIENT
  Age: 70 Year
  Sex: Male
  Weight: 77.57 kg

DRUGS (10)
  1. REVLIMID [Suspect]
     Indication: PLASMA CELL MYELOMA
     Route: 048
     Dates: start: 201302
  2. GRANISETRON HCL (GRANISETRON HYDROCHLORIDE) (1 MILLIGRAM, TABLETS) [Concomitant]
  3. IMITREX (SUMATRIPTAN) (50 MILLIGRAM, TABLETS) [Concomitant]
  4. LORAZEPAM (LORAZEPAM) (TABLETS) [Concomitant]
  5. METHADONE HCL (METHADONE HYDROCHLORIDE) (10 MILLIGRAM, TABLETS) [Concomitant]
  6. NEURONTIN (GABAPENTIN) (CAPSULES) [Concomitant]
  7. ONDANSETRON HCL (ONDANSETRON HYDROCHLORIDE) (TABLETS) [Concomitant]
  8. PAXIL (PAROXETINE HYDROCHLORIDE) (TABLETS) [Concomitant]
  9. PROCHLORPERAZINE MALEATE ( PROCHLORPERAZINE MALEATE) (TABLETS) [Concomitant]
  10. SCOPOLAMINE HYDROBROMIDE (HYOSCINE HYDROBROMIDE) [Concomitant]

REACTIONS (2)
  - Neutropenia [None]
  - Thrombocytopenia [None]
